FAERS Safety Report 9233364 (Version 1)
Quarter: 2013Q2

REPORT INFORMATION
  Report Type: Spontaneous
  Country: US (occurrence: US)
  Receive Date: 20130416
  Receipt Date: 20130416
  Transmission Date: 20140414
  Serious: Yes (Hospitalization, Other)
  Sender: FDA-Public Use
  Company Number: US-ELI_LILLY_AND_COMPANY-US201304003001

PATIENT
  Age: 50 Year
  Sex: Female
  Weight: 58.5 kg

DRUGS (2)
  1. HUMALOG LISPRO [Suspect]
  2. LANTUS [Concomitant]

REACTIONS (6)
  - Diabetic ketoacidosis [Unknown]
  - Blood glucose increased [Unknown]
  - Blood glucose increased [Unknown]
  - Influenza [Unknown]
  - Glycosylated haemoglobin increased [Unknown]
  - Fatigue [Unknown]
